FAERS Safety Report 9039052 (Version 1)
Quarter: 2013Q1

REPORT INFORMATION
  Report Type: Spontaneous
  Country: US (occurrence: None)
  Receive Date: 20130122
  Receipt Date: 20130122
  Transmission Date: 20140127
  Serious: No
  Sender: FDA-Public Use
  Company Number: None

PATIENT
  Age: 15 Year
  Sex: Male
  Weight: 70.31 kg

DRUGS (3)
  1. BUPROPION XL [Suspect]
     Indication: SEASONAL AFFECTIVE DISORDER
     Route: 048
  2. BUPROPION XL [Suspect]
     Indication: ATTENTION DEFICIT/HYPERACTIVITY DISORDER
     Route: 048
  3. BUPROPION XL [Suspect]
     Route: 048

REACTIONS (1)
  - Product substitution issue [None]
